FAERS Safety Report 9591832 (Version 2)
Quarter: 2013Q4

REPORT INFORMATION
  Report Type: Spontaneous
  Country: US (occurrence: US)
  Receive Date: 20131004
  Receipt Date: 20131004
  Transmission Date: 20140711
  Serious: No
  Sender: FDA-Public Use
  Company Number: US-AMGEN-USASP2012081932

PATIENT
  Age: 66 Year
  Sex: Female
  Weight: 68.03 kg

DRUGS (11)
  1. ENBREL [Suspect]
     Indication: RHEUMATOID ARTHRITIS
     Dosage: 25 MG, 2 TIMES/WK
  2. LEUCOVORIN CA [Concomitant]
     Dosage: 5 MG, UNK
     Route: 048
  3. LEVOTHYROXIN [Concomitant]
     Dosage: 175 MUG, UNK
     Route: 048
  4. MULTIVITAMINS, PLAIN [Concomitant]
     Dosage: UNK
     Route: 048
  5. FISH OIL [Concomitant]
     Dosage: UNK
     Route: 048
  6. VITAMIN D                          /00107901/ [Concomitant]
     Dosage: 1000 UNIT, UNK
     Route: 048
  7. FLAXSEED OIL [Concomitant]
     Dosage: UNK
     Route: 048
  8. VITAMIN B12                        /00056201/ [Concomitant]
     Dosage: 1000 CR, UNK
     Route: 048
  9. CALCIUM D                          /00944201/ [Concomitant]
     Dosage: UNK
     Route: 048
  10. CO Q 10                            /00517201/ [Concomitant]
     Dosage: 10 MG, UNK
     Route: 048
  11. VITAMIN B6 [Concomitant]
     Dosage: 250 MG, UNK
     Route: 048

REACTIONS (1)
  - Chronic sinusitis [Unknown]
